FAERS Safety Report 6436798-0 (Version None)
Quarter: 2009Q4

REPORT INFORMATION
  Report Type: 
  Country: None (occurrence: None)
  Receive Date: 20091109
  Receipt Date: 20091027
  Transmission Date: 20100525
  Serious: No
  Sender: FDA-Public Use
  Company Number: 2009011879

PATIENT
  Sex: Male
  Weight: 77.1115 kg

DRUGS (2)
  1. FENTORA [Suspect]
     Indication: PAIN
     Dosage: (100 MCG), BU
     Route: 002
     Dates: start: 20080101
  2. DURAGESIC-100 [Concomitant]

REACTIONS (2)
  - DRUG PRESCRIBING ERROR [None]
  - PRODUCT LABEL ISSUE [None]
